FAERS Safety Report 25896123 (Version 3)
Quarter: 2025Q4

REPORT INFORMATION
  Report Type: Spontaneous
  Country: US (occurrence: US)
  Receive Date: 20251008
  Receipt Date: 20251202
  Transmission Date: 20260117
  Serious: No
  Sender: PFIZER
  Company Number: US-PFIZER INC-202500195924

PATIENT
  Age: 9 Year
  Sex: Male
  Weight: 19.955 kg

DRUGS (2)
  1. GENOTROPIN [Suspect]
     Active Substance: SOMATROPIN
     Indication: Short stature
     Dosage: 0.6 MG, 1X/DAY (0.6MG ONCE A DAY BY INJECTION IN THE EVENING BEFORE BED)
  2. GENOTROPIN [Suspect]
     Active Substance: SOMATROPIN
     Indication: Failure to thrive

REACTIONS (3)
  - Device information output issue [Unknown]
  - Device power source issue [Unknown]
  - Device defective [Unknown]
